FAERS Safety Report 15347505 (Version 2)
Quarter: 2019Q1

REPORT INFORMATION
  Report Type: Report from Study
  Country: NL (occurrence: NL)
  Receive Date: 20180904
  Receipt Date: 20190221
  Transmission Date: 20190417
  Serious: Yes (Hospitalization)
  Sender: FDA-Public Use
  Company Number: NL-ROCHE-2180079

PATIENT

DRUGS (5)
  1. OXALIPLATIN. [Suspect]
     Active Substance: OXALIPLATIN
     Indication: COLORECTAL CANCER
     Dosage: ON 27/JUN/2018, PATIENT RECEIVED MOST RECENT DOSE.
     Route: 042
     Dates: start: 20180614
  2. 5-FU [Suspect]
     Active Substance: FLUOROURACIL
     Indication: COLORECTAL CANCER
     Dosage: ON 29/JUN/2018, PATIENT RECEIVED MOST RECENT DOSE.
     Route: 042
     Dates: start: 20180614
  3. IRINOTECAN [Suspect]
     Active Substance: IRINOTECAN
     Indication: COLORECTAL CANCER
     Dosage: ON 27/JUN/2018, PATIENT RECEIVED MOST RECENT DOSE.
     Route: 042
     Dates: start: 20180614
  4. BEVACIZUMAB. [Suspect]
     Active Substance: BEVACIZUMAB
     Indication: COLORECTAL CANCER
     Dosage: ON 27/JUN/2018, PATIENT RECEIVED MOST RECENT DOSE.
     Route: 042
     Dates: start: 20180614
  5. LEUCOVORIN. [Suspect]
     Active Substance: LEUCOVORIN
     Indication: COLORECTAL CANCER
     Dosage: ON 27/JUN/2018, PATIENT RECEIVED MOST RECENT DOSE.
     Route: 042
     Dates: start: 20180614

REACTIONS (1)
  - Pyrexia [Recovered/Resolved]

NARRATIVE: CASE EVENT DATE: 20180710
